FAERS Safety Report 7363876-4 (Version None)
Quarter: 2011Q1

REPORT INFORMATION
  Report Type: 
  Country: None (occurrence: None)
  Receive Date: 20110321
  Receipt Date: 20110315
  Transmission Date: 20110831
  Serious: Yes (Disabling)
  Sender: FDA-Public Use
  Company Number: CA-ROCHE-762846

PATIENT
  Sex: Female

DRUGS (1)
  1. TAMIFLU [Suspect]
     Indication: INFLUENZA
     Dosage: RECIEVED NINE DOSES
     Route: 048
     Dates: start: 20110214, end: 20110201

REACTIONS (1)
  - NEUROLEPTIC MALIGNANT SYNDROME [None]
